FAERS Safety Report 12719577 (Version 2)
Quarter: 2017Q3

REPORT INFORMATION
  Report Type: Report from Study
  Country: US (occurrence: US)
  Receive Date: 20160907
  Receipt Date: 20170905
  Transmission Date: 20171127
  Serious: Yes (Hospitalization)
  Sender: FDA-Public Use
  Company Number: PHHO2016US012701

PATIENT
  Age: 79 Year
  Sex: Female
  Weight: 57.5 kg

DRUGS (9)
  1. IRINOTECAN [Concomitant]
     Active Substance: IRINOTECAN
     Indication: PLASMA CELL MYELOMA
     Dosage: 120 MG, Q2W
     Route: 042
     Dates: start: 20160502, end: 20170809
  2. ATIVAN [Concomitant]
     Active Substance: LORAZEPAM
     Indication: PRODUCT USED FOR UNKNOWN INDICATION
     Dosage: UNK
     Route: 065
     Dates: start: 20160422
  3. 5 FU [Concomitant]
     Active Substance: FLUOROURACIL
     Indication: PLASMA CELL MYELOMA
     Dosage: 900 MG, Q2W
     Route: 042
     Dates: start: 20160502, end: 20170809
  4. OXALIPLATIN. [Concomitant]
     Active Substance: OXALIPLATIN
     Indication: PLASMA CELL MYELOMA
     Dosage: 65 MG, Q2W
     Route: 042
     Dates: start: 20160502, end: 20170809
  5. ODOMZO [Suspect]
     Active Substance: SONIDEGIB
     Indication: PLASMA CELL MYELOMA
     Dosage: 400 MG, BID
     Route: 048
     Dates: start: 20160502, end: 20170819
  6. RITALIN [Concomitant]
     Active Substance: METHYLPHENIDATE HYDROCHLORIDE
     Indication: PRODUCT USED FOR UNKNOWN INDICATION
     Dosage: UNK
     Route: 065
     Dates: start: 20161129
  7. TRANDATE [Concomitant]
     Active Substance: LABETALOL HYDROCHLORIDE
     Indication: PRODUCT USED FOR UNKNOWN INDICATION
     Dosage: UNK
     Route: 065
     Dates: start: 20151215
  8. LEUCOVORIN. [Concomitant]
     Active Substance: LEUCOVORIN
     Indication: PLASMA CELL MYELOMA
     Dosage: 400 MG, Q2W
     Route: 042
     Dates: start: 20160502, end: 20170809
  9. NOVOLOG [Concomitant]
     Active Substance: INSULIN ASPART
     Indication: PRODUCT USED FOR UNKNOWN INDICATION
     Dosage: UNK
     Route: 065
     Dates: start: 20160927

REACTIONS (2)
  - Colitis [Unknown]
  - Abdominal pain [Recovered/Resolved]

NARRATIVE: CASE EVENT DATE: 20160828
